FAERS Safety Report 7294824-3 (Version None)
Quarter: 2011Q1

REPORT INFORMATION
  Report Type: 
  Country: None (occurrence: None)
  Receive Date: 20110216
  Receipt Date: 20101229
  Transmission Date: 20110831
  Serious: Yes (Other)
  Sender: FDA-Public Use
  Company Number: US-BAYER-201029610NA

PATIENT
  Sex: Female

DRUGS (2)
  1. OCELLA [Suspect]
     Indication: PRODUCT USED FOR UNKNOWN INDICATION
  2. YASMIN [Suspect]
     Route: 048
     Dates: start: 20070801, end: 20090401

REACTIONS (2)
  - GALLBLADDER PAIN [None]
  - CHOLELITHIASIS [None]
